FAERS Safety Report 15169191 (Version 1)
Quarter: 2018Q3

REPORT INFORMATION
  Report Type: Spontaneous
  Country: FI (occurrence: FI)
  Receive Date: 20180720
  Receipt Date: 20180720
  Transmission Date: 20181010
  Serious: Yes (Hospitalization)
  Sender: FDA-Public Use
  Company Number: FI-TEVA-2018-FI-929100

PATIENT
  Age: 74 Year
  Sex: Male

DRUGS (12)
  1. DAKTARIN ORAL GEL [Interacting]
     Active Substance: MICONAZOLE
     Indication: ORAL CANDIDIASIS
     Dosage: 10 ML DAILY; 10,ML,DAILY
     Route: 048
     Dates: start: 20180606, end: 20180610
  2. HYDREX [Concomitant]
     Indication: HYPERTENSION
     Dosage: 50 MILLIGRAM DAILY; 50,MG,DAILY
     Route: 048
  3. XARELTO [Interacting]
     Active Substance: RIVAROXABAN
     Indication: THROMBOSIS PROPHYLAXIS
     Dosage: 40 MILLIGRAM DAILY; 40,MG,DAILY
     Route: 048
     Dates: start: 20180116
  4. SOMAC [Concomitant]
     Active Substance: PANTOPRAZOLE SODIUM
     Indication: PROPHYLAXIS AGAINST GASTROINTESTINAL ULCER
     Dosage: 40 MILLIGRAM DAILY; 40,MG,DAILY
     Route: 048
  5. EMCONCOR CHF [Concomitant]
     Active Substance: BISOPROLOL FUMARATE
     Indication: HYPERTENSION
     Dosage: 2.5 MILLIGRAM DAILY; 2.5,MG,DAILY
     Route: 048
  6. AMLODIPINE [Suspect]
     Active Substance: AMLODIPINE BESYLATE
     Indication: HYPERTENSION
     Dosage: 10,MG,DAILY
     Route: 048
  7. PANACOD [Concomitant]
     Active Substance: ACETAMINOPHEN\CODEINE PHOSPHATE
     Indication: PAIN
     Route: 048
  8. PARA?TABS [Concomitant]
     Active Substance: ACETAMINOPHEN
     Indication: PAIN
     Route: 048
  9. NITROGLYCERIN ORION [Concomitant]
     Indication: CHEST PAIN
     Route: 060
  10. XATRAL CR [Concomitant]
     Indication: PROSTATIC DISORDER
     Dosage: 10 MILLIGRAM DAILY; 10,MG,DAILY
     Route: 048
  11. SIMVASTATIN ORION [Concomitant]
     Active Substance: SIMVASTATIN
     Indication: HYPERCHOLESTEROLAEMIA
     Dosage: 40,MG,DAILY
     Route: 048
  12. DIOVAN [Concomitant]
     Active Substance: VALSARTAN
     Indication: HYPERTENSION
     Dosage: 80 MILLIGRAM DAILY; 80,MG,DAILY
     Route: 048

REACTIONS (2)
  - Blood pressure increased [Recovered/Resolved]
  - Drug interaction [Recovered/Resolved]

NARRATIVE: CASE EVENT DATE: 20180610
